FAERS Safety Report 9174981 (Version 2)
Quarter: 2013Q1

REPORT INFORMATION
  Report Type: Spontaneous
  Country: GB (occurrence: None)
  Receive Date: 20130318
  Receipt Date: 20130319
  Transmission Date: 20140127
  Serious: Yes (Other)
  Sender: FDA-Public Use
  Company Number: AUR-APL-2013-02196

PATIENT
  Age: 77 Year
  Sex: Female
  Weight: 57 kg

DRUGS (3)
  1. SIMVASTATIN [Suspect]
     Indication: BLOOD CHOLESTEROL INCREASED
     Route: 048
     Dates: end: 20121210
  2. ASPIRIN  (ACETYLSALICYLIC  ACID) [Concomitant]
  3. THYROXINE  (LEVOTHYROXINE  SODIUM) [Concomitant]

REACTIONS (4)
  - Sensation of heaviness [None]
  - Gait disturbance [None]
  - Pain in extremity [None]
  - Activities of daily living impaired [None]
